FAERS Safety Report 20162352 (Version 1)
Quarter: 2021Q4

REPORT INFORMATION
  Report Type: Spontaneous
  Country: CA (occurrence: CA)
  Receive Date: 20211208
  Receipt Date: 20211208
  Transmission Date: 20220303
  Serious: Yes (Death)
  Sender: FDA-Public Use
  Company Number: CA-PFIZER INC-202101013161

PATIENT
  Age: 69 Year
  Sex: Male

DRUGS (3)
  1. ZIRABEV [Suspect]
     Active Substance: BEVACIZUMAB-BVZR
     Indication: Glioblastoma
     Dosage: 1000 MG Q3 WEEKS
     Route: 042
     Dates: start: 20210901
  2. ZIRABEV [Suspect]
     Active Substance: BEVACIZUMAB-BVZR
     Dosage: 1000 MG Q3 WEEKS
     Route: 042
     Dates: start: 20210901
  3. LOMUSTINE [Concomitant]
     Active Substance: LOMUSTINE
     Dosage: UNK

REACTIONS (5)
  - Death [Fatal]
  - Asthenia [Unknown]
  - Movement disorder [Unknown]
  - Heart rate decreased [Unknown]
  - Off label use [Unknown]

NARRATIVE: CASE EVENT DATE: 20210901
